FAERS Safety Report 6706016-4 (Version None)
Quarter: 2010Q2

REPORT INFORMATION
  Report Type: 
  Country: None (occurrence: None)
  Receive Date: 20100430
  Receipt Date: 20100430
  Transmission Date: 20101027
  Serious: Yes (Other)
  Sender: FDA-Public Use
  Company Number: None

PATIENT
  Sex: Female
  Weight: 56.8 kg

DRUGS (1)
  1. ADDERALL XR 20 [Suspect]
     Indication: ATTENTION DEFICIT/HYPERACTIVITY DISORDER
     Dosage: 20MG 3-4X PER DAY 047 (THERAPY DATES: MID FEBRUARY-BEGINNING OF APRIL)

REACTIONS (7)
  - DRUG INEFFECTIVE [None]
  - ECONOMIC PROBLEM [None]
  - FATIGUE [None]
  - HEADACHE [None]
  - IRRITABILITY [None]
  - MOOD SWINGS [None]
  - PRODUCT SUBSTITUTION ISSUE [None]
